FAERS Safety Report 18963322 (Version 2)
Quarter: 2021Q1

REPORT INFORMATION
  Report Type: Report from Study
  Country: US (occurrence: US)
  Receive Date: 20210303
  Receipt Date: 20210331
  Transmission Date: 20210420
  Serious: No
  Sender: FDA-Public Use
  Company Number: NVSC2021US048592

PATIENT
  Sex: Female

DRUGS (1)
  1. COSENTYX [Suspect]
     Active Substance: SECUKINUMAB
     Indication: PSORIASIS
     Dosage: 300 MG, QMO ( 0,1,2,3,4 AND ONCE EVERY 4 WEEKS
     Route: 058
     Dates: start: 20210228

REACTIONS (1)
  - Exposure via breast milk [Unknown]
